FAERS Safety Report 7794354-6 (Version None)
Quarter: 2011Q3

REPORT INFORMATION
  Report Type: 
  Country: None (occurrence: None)
  Receive Date: 20110929
  Receipt Date: 20110914
  Transmission Date: 20111222
  Serious: Yes (Death)
  Sender: FDA-Public Use
  Company Number: 2011MPI00190

PATIENT
  Age: 18 Year
  Sex: Male

DRUGS (4)
  1. BRENTUXIMAB VEDOTIN (BRENTUXIMAB VEDOTIN) INJECTION [Suspect]
     Indication: HODGKIN'S DISEASE
     Dosage: 120 MG, INTRAVENOUS
     Route: 042
     Dates: start: 20110301, end: 20110501
  2. BRENTUXIMAB VEDOTIN (BRENTUXIMAB VEDOTIN) INJECTION [Suspect]
     Indication: HODGKIN'S DISEASE
     Dosage: 120 MG, INTRAVENOUS
     Route: 042
     Dates: start: 20110301, end: 20110809
  3. TRIMETHOPRIM + SULFAMETHOXAZOLE [Concomitant]
  4. ACYCLOVIR [Concomitant]

REACTIONS (11)
  - RESPIRATORY DISTRESS [None]
  - DYSPNOEA [None]
  - OXYGEN SATURATION DECREASED [None]
  - RESPIRATORY FAILURE [None]
  - PERICARDIAL EFFUSION [None]
  - PNEUMONIA RESPIRATORY SYNCYTIAL VIRAL [None]
  - DILATATION VENTRICULAR [None]
  - PULMONARY HYPERTENSION [None]
  - PULMONARY EMBOLISM [None]
  - HYPOTENSION [None]
  - TACHYCARDIA [None]
